FAERS Safety Report 4855248-9 (Version None)
Quarter: 2005Q4

REPORT INFORMATION
  Report Type: 
  Country: None (occurrence: None)
  Receive Date: 20051215
  Receipt Date: 20051205
  Transmission Date: 20060501
  Serious: Yes (Hospitalization, Disabling)
  Sender: FDA-Public Use
  Company Number: FR-MERCK-0512FRA00015

PATIENT
  Age: 52 Year
  Sex: Male

DRUGS (6)
  1. ZETIA [Suspect]
     Indication: HYPERCHOLESTEROLAEMIA
     Route: 048
     Dates: start: 20050615, end: 20051118
  2. ATORVASTATIN CALCIUM [Suspect]
     Indication: HYPERCHOLESTEROLAEMIA
     Route: 048
     Dates: start: 20040115, end: 20051118
  3. CRATAEGUS [Concomitant]
     Route: 048
     Dates: start: 20050101
  4. QUININE [Concomitant]
     Route: 048
     Dates: start: 20050101
  5. MAGNESIUM (UNSPECIFIED) [Concomitant]
     Route: 048
     Dates: start: 20050101
  6. LEVOTHYROXINE SODIUM [Concomitant]
     Indication: HYPOTHYROIDISM
     Route: 048
     Dates: start: 20050101

REACTIONS (1)
  - TENDON RUPTURE [None]
